FAERS Safety Report 5317403-3 (Version None)
Quarter: 2007Q2

REPORT INFORMATION
  Report Type: 
  Country: None (occurrence: None)
  Receive Date: 20070504
  Receipt Date: 20070424
  Transmission Date: 20071010
  Serious: Yes (Hospitalization, Other)
  Sender: FDA-Public Use
  Company Number: CH-ABBOTT-07P-151-0365959-00

PATIENT
  Age: 41 Year
  Sex: Male

DRUGS (10)
  1. VALPROATE SODIUM [Suspect]
     Indication: BIPOLAR I DISORDER
  2. VALPROATE SODIUM [Suspect]
  3. VALPROATE SODIUM [Suspect]
  4. VENLAFAXINE HCL [Suspect]
     Indication: DEPRESSION
  5. VENLAFAXINE HCL [Suspect]
  6. LITHIUM CARBONATE [Suspect]
     Indication: BIPOLAR I DISORDER
  7. LITHIUM SULFATE [Concomitant]
     Indication: BIPOLAR I DISORDER
  8. LITHIUM SULFATE [Concomitant]
     Dosage: NOT REPORTED
  9. OLANZAPINE [Concomitant]
     Indication: DELUSION
  10. CLONAZEPAM [Concomitant]
     Indication: DELUSION

REACTIONS (2)
  - MANIA [None]
  - SEROTONIN SYNDROME [None]
